FAERS Safety Report 5268873-0 (Version None)
Quarter: 2007Q1

REPORT INFORMATION
  Report Type: 
  Country: None (occurrence: None)
  Receive Date: 20070319
  Receipt Date: 20070307
  Transmission Date: 20070707
  Serious: Yes (Other)
  Sender: FDA-Public Use
  Company Number: PHNU2007DE00683

PATIENT
  Age: 76 Year
  Sex: Female

DRUGS (3)
  1. ZOMETA [Suspect]
     Indication: METASTASES TO BONE
     Dosage: 4 MG, UNK
     Route: 042
     Dates: start: 20050401, end: 20060101
  2. BONDRONAT [Suspect]
     Indication: METASTASES TO BONE
     Dosage: 6 MG, UNK
     Route: 042
     Dates: start: 20060101, end: 20070101
  3. AROMASIN [Concomitant]
     Indication: BREAST CANCER METASTATIC
     Dosage: 25 MG, QD
     Route: 048
     Dates: start: 20050401

REACTIONS (3)
  - BIOPSY SITE UNSPECIFIED ABNORMAL [None]
  - JAW OPERATION [None]
  - OSTEONECROSIS [None]
